FAERS Safety Report 23710303 (Version 1)
Quarter: 2024Q2

REPORT INFORMATION
  Report Type: Spontaneous
  Country: US (occurrence: US)
  Receive Date: 20240405
  Receipt Date: 20240405
  Transmission Date: 20240716
  Serious: Yes (Hospitalization, Other)
  Sender: FDA-Public Use
  Company Number: US-SUN PHARMACEUTICAL INDUSTRIES LTD-2024R1-440135

PATIENT
  Age: 24 Year
  Sex: Female

DRUGS (2)
  1. PROPRANOLOL [Suspect]
     Active Substance: PROPRANOLOL HYDROCHLORIDE
     Indication: Hyperthyroidism
     Dosage: 20 MILLIGRAM, QD
     Route: 065
  2. METHIMAZOLE [Suspect]
     Active Substance: METHIMAZOLE
     Indication: Hyperthyroidism
     Dosage: 30 MILLIGRAM, QD
     Route: 065

REACTIONS (4)
  - Exposure during pregnancy [Unknown]
  - Premature delivery [Unknown]
  - Tri-iodothyronine increased [Unknown]
  - Thyroxine free increased [Unknown]
